FAERS Safety Report 5070637-8 (Version None)
Quarter: 2006Q3

REPORT INFORMATION
  Report Type: 
  Country: None (occurrence: None)
  Receive Date: 20060804
  Receipt Date: 20050811
  Transmission Date: 20061208
  Serious: No
  Sender: FDA-Public Use
  Company Number: US-GLAXOSMITHKLINE-A0569878A

PATIENT
  Age: 57 Year

DRUGS (1)
  1. NICORETTE (MINT) [Suspect]

REACTIONS (1)
  - BLOOD GLUCOSE INCREASED [None]
